FAERS Safety Report 12131701 (Version 1)
Quarter: 2016Q1

REPORT INFORMATION
  Report Type: Spontaneous
  Country: US (occurrence: US)
  Receive Date: 20160301
  Receipt Date: 20160301
  Transmission Date: 20160526
  Serious: No
  Sender: FDA-Public Use
  Company Number: US-JNJFOC-20160123722

PATIENT
  Age: 17 Year
  Sex: Male
  Weight: 77 kg

DRUGS (2)
  1. REMICADE [Suspect]
     Active Substance: INFLIXIMAB
     Indication: CROHN^S DISEASE
     Route: 042
     Dates: start: 2011
  2. REMICADE [Suspect]
     Active Substance: INFLIXIMAB
     Indication: CROHN^S DISEASE
     Route: 042
     Dates: start: 20160122

REACTIONS (3)
  - Accidental exposure to product [Unknown]
  - Underdose [Unknown]
  - Infusion site extravasation [Unknown]

NARRATIVE: CASE EVENT DATE: 20160122
